FAERS Safety Report 22246204 (Version 1)
Quarter: 2023Q2

REPORT INFORMATION
  Report Type: Spontaneous
  Country: US (occurrence: None)
  Receive Date: 20230422
  Receipt Date: 20230422
  Transmission Date: 20230722
  Serious: Yes (Disabling, Other)
  Sender: FDA-Public Use
  Company Number: None

PATIENT
  Age: 40 Year
  Sex: Female
  Weight: 56.7 kg

DRUGS (2)
  1. MIRENA [Suspect]
     Active Substance: LEVONORGESTREL
  2. VITAMINS [Concomitant]
     Active Substance: VITAMINS

REACTIONS (19)
  - Nausea [None]
  - Dizziness [None]
  - Vision blurred [None]
  - Migraine [None]
  - Amnesia [None]
  - Confusional state [None]
  - Crying [None]
  - Mood swings [None]
  - Depression [None]
  - Speech disorder [None]
  - Heart rate increased [None]
  - Blood pressure increased [None]
  - Head discomfort [None]
  - Paranasal sinus discomfort [None]
  - Heavy menstrual bleeding [None]
  - Ligament pain [None]
  - Muscle spasms [None]
  - Balance disorder [None]
  - Inflammation [None]
